FAERS Safety Report 6610321-X (Version None)
Quarter: 2010Q1

REPORT INFORMATION
  Report Type: 
  Country: None (occurrence: None)
  Receive Date: 20100302
  Receipt Date: 20100219
  Transmission Date: 20100710
  Serious: Yes (Death)
  Sender: FDA-Public Use
  Company Number: GXKR2010US02080

PATIENT
  Age: 54 Year
  Sex: Male

DRUGS (5)
  1. MYCOPHENOLATE MOFETIL (NGX) [Suspect]
     Indication: LIVER TRANSPLANT
     Route: 065
  2. TACROLIMUS [Suspect]
     Indication: LIVER TRANSPLANT
     Route: 065
  3. PEGINTERFERON ALFA-2A [Concomitant]
     Indication: ANAEMIA
     Dosage: 90 UG, QW
     Route: 065
  4. EPOGEN [Concomitant]
     Indication: ANAEMIA
     Route: 065
  5. NEUPOGEN [Concomitant]
     Route: 065

REACTIONS (8)
  - ASTHENIA [None]
  - CONTUSION [None]
  - DYSPNOEA [None]
  - MALAISE [None]
  - MYELODYSPLASTIC SYNDROME [None]
  - PYREXIA [None]
  - SEPTIC SHOCK [None]
  - SKIN INFECTION [None]
